FAERS Safety Report 8690890 (Version 3)
Quarter: 2012Q4

REPORT INFORMATION
  Report Type: 
  Country: JP (occurrence: JP)
  Receive Date: 20120730
  Receipt Date: 20120918
  Transmission Date: 20130627
  Serious: Yes (Other)
  Sender: FDA-Public Use
  Company Number: JP-AMGEN-JPNSP2012046095

PATIENT
  Age: 40 Year
  Sex: Female

DRUGS (4)
  1. ENBREL [Suspect]
     Indication: RHEUMATOID ARTHRITIS
     Dosage: 25 mg/10 days
     Route: 058
  2. ENBREL [Suspect]
     Dosage: 25 mg/10 days
     Route: 058
  3. RHEUMATREX                         /00113801/ [Suspect]
     Indication: RHEUMATOID ARTHRITIS
     Dosage: 6 mg/week
     Route: 048
  4. PREDONINE /00016201/ [Concomitant]
     Dosage: UNK
     Route: 048

REACTIONS (1)
  - Breast cancer [Not Recovered/Not Resolved]
